FAERS Safety Report 23989077 (Version 3)
Quarter: 2025Q1

REPORT INFORMATION
  Report Type: Spontaneous
  Country: US (occurrence: US)
  Receive Date: 20240619
  Receipt Date: 20250226
  Transmission Date: 20250408
  Serious: Yes (Other)
  Sender: AUROBINDO
  Company Number: US-MLMSERVICE-20240403-PI012798-00270-1

PATIENT
  Age: 3 Decade
  Sex: Male

DRUGS (18)
  1. METHYLPREDNISOLONE [Suspect]
     Active Substance: METHYLPREDNISOLONE
     Indication: Dermatomyositis
     Dosage: 48 MILLIGRAM, ONCE A DAY
     Route: 042
  2. METHYLPREDNISOLONE [Suspect]
     Active Substance: METHYLPREDNISOLONE
     Indication: Immunosuppressant drug therapy
  3. METHYLPREDNISOLONE [Suspect]
     Active Substance: METHYLPREDNISOLONE
     Indication: Interstitial lung disease
  4. PREDNISONE [Suspect]
     Active Substance: PREDNISONE
     Indication: Poikiloderma
     Route: 065
  5. PREDNISONE [Suspect]
     Active Substance: PREDNISONE
     Indication: Interstitial lung disease
     Route: 065
  6. PREDNISONE [Suspect]
     Active Substance: PREDNISONE
     Route: 065
  7. TACROLIMUS [Suspect]
     Active Substance: TACROLIMUS
     Indication: Poikiloderma
     Route: 061
  8. MUPIROCIN [Suspect]
     Active Substance: MUPIROCIN
     Indication: Poikiloderma
     Route: 065
  9. CEFTRIAXONE [Concomitant]
     Active Substance: CEFTRIAXONE
     Indication: Diverticulitis
     Route: 042
  10. HEPARIN [Concomitant]
     Active Substance: HEPARIN SODIUM
     Indication: Anticoagulant therapy
     Route: 042
  11. HEPARIN [Concomitant]
     Active Substance: HEPARIN SODIUM
     Indication: Pulmonary embolism
  12. METRONIDAZOLE [Concomitant]
     Active Substance: METRONIDAZOLE
     Indication: Diverticulitis
     Route: 042
  13. MYCOPHENOLATE MOFETIL [Concomitant]
     Active Substance: MYCOPHENOLATE MOFETIL
     Indication: Dermatomyositis
     Dosage: 500 MILLIGRAM, ONCE A DAY, 500?MG DAILY ORALLY FOR 9 MONTHS
     Route: 048
  14. MYCOPHENOLATE MOFETIL [Concomitant]
     Active Substance: MYCOPHENOLATE MOFETIL
     Indication: Interstitial lung disease
     Route: 048
  15. TACROLIMUS [Concomitant]
     Active Substance: TACROLIMUS
     Indication: Dermatomyositis
     Route: 048
  16. Immunoglobulin [Concomitant]
     Indication: Adjuvant therapy
     Route: 042
  17. Immunoglobulin [Concomitant]
     Indication: Interstitial lung disease
     Route: 042
  18. RITUXIMAB [Concomitant]
     Active Substance: RITUXIMAB
     Indication: Interstitial lung disease
     Dosage: 1000 MILLIGRAM, ONCE A DAY
     Route: 042

REACTIONS (4)
  - Febrile neutropenia [Recovering/Resolving]
  - Septic shock [Recovering/Resolving]
  - Substance-induced psychotic disorder [Recovering/Resolving]
  - Drug ineffective [Unknown]
